FAERS Safety Report 6843925-X (Version None)
Quarter: 2010Q3

REPORT INFORMATION
  Report Type: 
  Country: None (occurrence: None)
  Receive Date: 20100715
  Receipt Date: 20100706
  Transmission Date: 20110219
  Serious: Yes (Other)
  Sender: FDA-Public Use
  Company Number: AU-SANOFI-AVENTIS-2010SA032620

PATIENT
  Age: 58 Year
  Sex: Female

DRUGS (7)
  1. ARAVA [Suspect]
     Indication: RHEUMATOID ARTHRITIS
     Route: 048
     Dates: start: 20091215, end: 20100517
  2. PLAQUENIL [Concomitant]
  3. PREDNISOLONE [Concomitant]
  4. PREDNISOLONE [Concomitant]
     Indication: RHEUMATOID ARTHRITIS
  5. STRONTIUM RANELATE [Concomitant]
     Indication: OSTEOPOROSIS
  6. MOBIC [Concomitant]
  7. PANADOL [Concomitant]

REACTIONS (2)
  - BREAST CANCER [None]
  - LIVER FUNCTION TEST ABNORMAL [None]
